FAERS Safety Report 4578322-3 (Version None)
Quarter: 2005Q1

REPORT INFORMATION
  Report Type: 
  Country: None (occurrence: None)
  Receive Date: 20050211
  Receipt Date: 20050208
  Transmission Date: 20050727
  Serious: Yes (Hospitalization)
  Sender: FDA-Public Use
  Company Number: PHBS2005JP02030

PATIENT
  Age: 82 Year
  Sex: Male

DRUGS (1)
  1. LAMISIL [Suspect]
     Indication: NAIL TINEA
     Dosage: 125 MG, QD
     Route: 048
     Dates: start: 20050127, end: 20050202

REACTIONS (5)
  - BLOOD CREATININE INCREASED [None]
  - BLOOD POTASSIUM INCREASED [None]
  - DUODENAL ULCER HAEMORRHAGE [None]
  - FEELING ABNORMAL [None]
  - HAEMOGLOBIN DECREASED [None]
